FAERS Safety Report 9814895 (Version 1)
Quarter: 2014Q1

REPORT INFORMATION
  Report Type: Spontaneous
  Country: JP (occurrence: JP)
  Receive Date: 20140113
  Receipt Date: 20140113
  Transmission Date: 20141002
  Serious: Yes (Other)
  Sender: FDA-Public Use
  Company Number: JP-GLAXOSMITHKLINE-B0959574A

PATIENT
  Age: 73 Year
  Sex: Female

DRUGS (7)
  1. OMEGA-3-ACID ETHYL ESTERS [Suspect]
     Indication: HYPERLIPIDAEMIA
     Dosage: 2000MG PER DAY
     Route: 048
     Dates: start: 20130613
  2. BAYASPIRIN [Suspect]
     Indication: ANGINA PECTORIS
     Dosage: 100MG PER DAY
     Route: 048
     Dates: start: 20131223
  3. DIPYRIDAMOLE [Suspect]
     Indication: ANGINA PECTORIS
     Dosage: 75MG PER DAY
  4. MUCOSTA [Concomitant]
  5. ADALAT CR [Concomitant]
  6. DETANTOL R [Concomitant]
  7. GLUCOBAY [Concomitant]

REACTIONS (4)
  - Epistaxis [Not Recovered/Not Resolved]
  - Drug interaction [Not Recovered/Not Resolved]
  - Dyspnoea [Unknown]
  - Off label use [Not Recovered/Not Resolved]
